FAERS Safety Report 14758749 (Version 1)
Quarter: 2018Q2

REPORT INFORMATION
  Report Type: Spontaneous
  Country: AU (occurrence: AU)
  Receive Date: 20180413
  Receipt Date: 20180413
  Transmission Date: 20180711
  Serious: Yes (Hospitalization)
  Sender: FDA-Public Use
  Company Number: PHHY2018AU062287

PATIENT
  Sex: Male

DRUGS (1)
  1. ENTRESTO [Suspect]
     Active Substance: SACUBITRIL\VALSARTAN
     Indication: CARDIAC FAILURE CHRONIC
     Dosage: UNK
     Route: 065

REACTIONS (6)
  - Atrial fibrillation [Unknown]
  - Dizziness [Unknown]
  - Cardiac failure [Unknown]
  - Blood creatinine increased [Unknown]
  - Hypotension [Unknown]
  - Renal impairment [Unknown]
